FAERS Safety Report 17917665 (Version 4)
Quarter: 2022Q1

REPORT INFORMATION
  Report Type: Spontaneous
  Country: US (occurrence: US)
  Receive Date: 20200619
  Receipt Date: 20220317
  Transmission Date: 20220423
  Serious: Yes (Other)
  Sender: FDA-Public Use
  Company Number: US-GILEAD-2020-0473759

PATIENT
  Age: 60 Year
  Sex: Male
  Weight: 76.19 kg

DRUGS (86)
  1. VIREAD [Suspect]
     Active Substance: TENOFOVIR DISOPROXIL FUMARATE
     Indication: HIV infection
     Dosage: UNK
     Route: 048
     Dates: start: 20031206, end: 20040407
  2. VIREAD [Suspect]
     Active Substance: TENOFOVIR DISOPROXIL FUMARATE
     Dosage: UNK
     Route: 048
     Dates: start: 20020613, end: 20040407
  3. TRUVADA [Suspect]
     Active Substance: EMTRICITABINE\TENOFOVIR DISOPROXIL FUMARATE
     Indication: HIV infection
     Dosage: UNK
     Route: 048
     Dates: start: 200510, end: 200703
  4. ATRIPLA [Suspect]
     Active Substance: EFAVIRENZ\EMTRICITABINE\TENOFOVIR DISOPROXIL FUMARATE
     Indication: HIV infection
     Dosage: UNK
     Route: 048
     Dates: start: 200910, end: 20120314
  5. EMTRIVA [Concomitant]
     Active Substance: EMTRICITABINE
  6. DARBEPOETIN ALFA [Concomitant]
     Active Substance: DARBEPOETIN ALFA
  7. LASIX [Concomitant]
     Active Substance: FUROSEMIDE
  8. CHOLECALCIFEROL [Concomitant]
     Active Substance: CHOLECALCIFEROL
  9. VIAGRA [Concomitant]
     Active Substance: SILDENAFIL CITRATE
  10. ACETAMINOPHEN [Concomitant]
     Active Substance: ACETAMINOPHEN
  11. AMOXICILLIN [Concomitant]
     Active Substance: AMOXICILLIN
  12. AMPICILLIN [Concomitant]
     Active Substance: AMPICILLIN
  13. ASPIRIN [Concomitant]
     Active Substance: ASPIRIN
  14. ATORVASTATIN [Concomitant]
     Active Substance: ATORVASTATIN
  15. BACTRIM [Concomitant]
     Active Substance: SULFAMETHOXAZOLE\TRIMETHOPRIM
  16. CORTISONE [Concomitant]
     Active Substance: CORTISONE
  17. CYCLOPHOSPHAMIDE [Concomitant]
     Active Substance: CYCLOPHOSPHAMIDE
  18. DEXAMETHASONE [Concomitant]
     Active Substance: DEXAMETHASONE
  19. DYAZIDE [Concomitant]
     Active Substance: HYDROCHLOROTHIAZIDE\TRIAMTERENE
  20. FLEET LAXATIVE [Concomitant]
  21. FLOMAX [Concomitant]
     Active Substance: TAMSULOSIN HYDROCHLORIDE
  22. HEPARIN [Concomitant]
     Active Substance: HEPARIN SODIUM
  23. LEVOFLOXACIN [Concomitant]
     Active Substance: LEVOFLOXACIN
  24. METHOTREXATE [Concomitant]
     Active Substance: METHOTREXATE
  25. OMEPRAZOLE [Concomitant]
     Active Substance: OMEPRAZOLE
  26. PANTOPRAZOLE [Concomitant]
     Active Substance: PANTOPRAZOLE
  27. PREDNISOLONE [Concomitant]
     Active Substance: PREDNISOLONE
  28. PREDNISONE [Concomitant]
     Active Substance: PREDNISONE
  29. RANITIDINE [Concomitant]
     Active Substance: RANITIDINE
  30. SIMVASTATIN [Concomitant]
     Active Substance: SIMVASTATIN
  31. TACROLIMUS [Concomitant]
     Active Substance: TACROLIMUS
  32. VANCOMYCIN [Concomitant]
     Active Substance: VANCOMYCIN
  33. EPZICOM [Concomitant]
     Active Substance: ABACAVIR SULFATE\LAMIVUDINE
  34. SUSTIVA [Concomitant]
     Active Substance: EFAVIRENZ
  35. TIVICAY [Concomitant]
     Active Substance: DOLUTEGRAVIR SODIUM
  36. VIDEX [Concomitant]
     Active Substance: DIDANOSINE
  37. ZIAGEN [Concomitant]
     Active Substance: ABACAVIR SULFATE
  38. ATIVAN [Concomitant]
     Active Substance: LORAZEPAM
  39. PEPCID [Concomitant]
     Active Substance: FAMOTIDINE
  40. IBUPROFEN [Concomitant]
     Active Substance: IBUPROFEN
  41. ZOFRAN [Concomitant]
     Active Substance: ONDANSETRON HYDROCHLORIDE
  42. NAPROXEN [Concomitant]
     Active Substance: NAPROXEN
  43. ATENOLOL [Concomitant]
     Active Substance: ATENOLOL
  44. BISACODYL [Concomitant]
     Active Substance: BISACODYL
  45. ACETAMINOPHEN\HYDROCODONE [Concomitant]
     Active Substance: ACETAMINOPHEN\HYDROCODONE
  46. PROCHLORPERAZINE [Concomitant]
     Active Substance: PROCHLORPERAZINE
  47. KENALOG [Concomitant]
     Active Substance: TRIAMCINOLONE ACETONIDE
  48. TERBINAFINE [Concomitant]
     Active Substance: TERBINAFINE
  49. TRAZODONE [Concomitant]
     Active Substance: TRAZODONE HYDROCHLORIDE
  50. TRIAMTERENE AND HYDROCHLOROTHIAZIDE [Concomitant]
     Active Substance: HYDROCHLOROTHIAZIDE\TRIAMTERENE
  51. BENZOYL PEROXIDE [Concomitant]
     Active Substance: BENZOYL PEROXIDE
  52. HYDROQUINONE [Concomitant]
     Active Substance: HYDROQUINONE
  53. TRETINOIN [Concomitant]
     Active Substance: TRETINOIN
  54. COLCHICINE [Concomitant]
     Active Substance: COLCHICINE
  55. KEFLEX [Concomitant]
     Active Substance: CEPHALEXIN
  56. OXYCODONE [Concomitant]
     Active Substance: OXYCODONE
  57. MYCOPHENOLIC ACID [Concomitant]
     Active Substance: MYCOPHENOLIC ACID
  58. OMEPRAZOLE [Concomitant]
     Active Substance: OMEPRAZOLE
  59. LISINOPRIL [Concomitant]
     Active Substance: LISINOPRIL
  60. COREG [Concomitant]
     Active Substance: CARVEDILOL
  61. NORVASC [Concomitant]
     Active Substance: AMLODIPINE BESYLATE
  62. LIPITOR [Concomitant]
     Active Substance: ATORVASTATIN CALCIUM
  63. MAGNESIUM [Concomitant]
     Active Substance: MAGNESIUM
  64. NEURONTIN [Concomitant]
     Active Substance: GABAPENTIN
  65. MELATONIN [Concomitant]
     Active Substance: MELATONIN
  66. BISMUTH SUBSALICYLATE\CALCIUM CARBONATE [Concomitant]
     Active Substance: BISMUTH SUBSALICYLATE\CALCIUM CARBONATE
  67. AMLODIPINE BESYLATE [Concomitant]
     Active Substance: AMLODIPINE BESYLATE
  68. LABETALOL [Concomitant]
     Active Substance: LABETALOL\LABETALOL HYDROCHLORIDE
  69. SILDENAFIL CITRATE [Concomitant]
     Active Substance: SILDENAFIL CITRATE
  70. PRAZOSIN [Concomitant]
     Active Substance: PRAZOSIN
  71. HYDRALAZINE HCL [Concomitant]
     Active Substance: HYDRALAZINE HYDROCHLORIDE
  72. CLONIDINE [Concomitant]
     Active Substance: CLONIDINE
  73. MINOXIDIL [Concomitant]
     Active Substance: MINOXIDIL
  74. TESTOSTERONE [TESTOSTERONE CIPIONATE] [Concomitant]
  75. FISH OIL [Concomitant]
     Active Substance: FISH OIL
  76. TRIAMTERENE [Concomitant]
     Active Substance: TRIAMTERENE
  77. COTRIMOXAZOLE [Concomitant]
     Active Substance: SULFAMETHOXAZOLE\TRIMETHOPRIM
  78. ACETAMINOPHEN AND CODEINE [Concomitant]
     Active Substance: ACETAMINOPHEN\CODEINE PHOSPHATE
  79. VARDENAFIL [Concomitant]
     Active Substance: VARDENAFIL HYDROCHLORIDE
  80. SULFAMETHOXAZOLE AND TRIMETHOPRIM [Concomitant]
     Active Substance: SULFAMETHOXAZOLE\TRIMETHOPRIM
  81. METOPROLOL TARTRATE [Concomitant]
     Active Substance: METOPROLOL TARTRATE
  82. PEGFILGRASTIM [Concomitant]
     Active Substance: PEGFILGRASTIM
  83. AMOXICILLIN\CLAVULANIC ACID [Concomitant]
     Active Substance: AMOXICILLIN\CLAVULANIC ACID
  84. MELOXICAM [Concomitant]
     Active Substance: MELOXICAM
  85. DICLOXACILLIN [Concomitant]
     Active Substance: DICLOXACILLIN
  86. SEVELAMER CARBONATE [Concomitant]
     Active Substance: SEVELAMER CARBONATE

REACTIONS (10)
  - End stage renal disease [Not Recovered/Not Resolved]
  - Osteoporosis [Not Recovered/Not Resolved]
  - Renal failure [Unknown]
  - Bone density decreased [Unknown]
  - Nephropathy [Unknown]
  - Nephrogenic anaemia [Unknown]
  - General physical health deterioration [Not Recovered/Not Resolved]
  - Medical diet [Not Recovered/Not Resolved]
  - Libido decreased [Not Recovered/Not Resolved]
  - Fatigue [Not Recovered/Not Resolved]

NARRATIVE: CASE EVENT DATE: 20120213
